FAERS Safety Report 20400615 (Version 2)
Quarter: 2022Q1

REPORT INFORMATION
  Report Type: Spontaneous
  Country: US (occurrence: US)
  Receive Date: 20220131
  Receipt Date: 20220201
  Transmission Date: 20220424
  Serious: No
  Sender: FDA-Public Use
  Company Number: US-ABBVIE-21K-163-3965228-00

PATIENT
  Sex: Female

DRUGS (1)
  1. HUMIRA [Suspect]
     Active Substance: ADALIMUMAB
     Indication: Product used for unknown indication
     Route: 058

REACTIONS (6)
  - Joint swelling [Unknown]
  - General physical health deterioration [Unknown]
  - Colitis ulcerative [Unknown]
  - Swelling [Unknown]
  - Drug ineffective [Unknown]
  - Peripheral swelling [Unknown]
